FAERS Safety Report 21881147 (Version 3)
Quarter: 2023Q1

REPORT INFORMATION
  Report Type: Spontaneous
  Country: US (occurrence: US)
  Receive Date: 20230118
  Receipt Date: 20230208
  Transmission Date: 20230418
  Serious: No
  Sender: FDA-Public Use
  Company Number: US-009507513-2301USA004466

PATIENT
  Sex: Male

DRUGS (2)
  1. DIFICID [Suspect]
     Active Substance: FIDAXOMICIN
     Dosage: 5 ML A DAY
     Route: 048
     Dates: start: 20230110
  2. DIFICID [Suspect]
     Active Substance: FIDAXOMICIN
     Dosage: UNK
     Dates: start: 20230116

REACTIONS (7)
  - Diarrhoea [Recovered/Resolved]
  - Abdominal pain upper [Unknown]
  - Clostridium test positive [Unknown]
  - Liquid product physical issue [Unknown]
  - Poor quality product administered [Unknown]
  - Circumstance or information capable of leading to medication error [Unknown]
  - Incorrect dose administered [Unknown]

NARRATIVE: CASE EVENT DATE: 20230110
